FAERS Safety Report 23866799 (Version 1)
Quarter: 2024Q2

REPORT INFORMATION
  Report Type: Spontaneous
  Country: US (occurrence: None)
  Receive Date: 20240516
  Receipt Date: 20240516
  Transmission Date: 20240716
  Serious: Yes (Hospitalization)
  Sender: FDA-Public Use
  Company Number: None

PATIENT
  Age: 77 Year
  Sex: Female

DRUGS (17)
  1. AMBRISENTAN [Suspect]
     Active Substance: AMBRISENTAN
     Indication: Pulmonary arterial hypertension
     Dosage: FREQUENCY : DAILY;?
     Route: 048
     Dates: start: 20220509
  2. SILDENAFIL [Suspect]
     Active Substance: SILDENAFIL
  3. SILDENAFIL [Concomitant]
     Active Substance: SILDENAFIL
  4. ALVESCO HFA [Concomitant]
  5. FUROSEMIDE [Concomitant]
     Active Substance: FUROSEMIDE
  6. PANTOPRAZOLE [Concomitant]
     Active Substance: PANTOPRAZOLE
  7. GLUCOSAMINE/CHONDROITIN [Concomitant]
  8. ALBUTEROL SULFATE [Concomitant]
     Active Substance: ALBUTEROL SULFATE
  9. ATORVASTATIN [Concomitant]
     Active Substance: ATORVASTATIN
  10. SPIRIVA RESPIMAT [Concomitant]
     Active Substance: TIOTROPIUM BROMIDE
  11. PROGESTERONE [Concomitant]
     Active Substance: PROGESTERONE
  12. VITAMIN D3 [Concomitant]
     Active Substance: CHOLECALCIFEROL
  13. VITAMIN B12 [Concomitant]
     Active Substance: CYANOCOBALAMIN
  14. ASCORBIC ACID\IRON [Concomitant]
     Active Substance: ASCORBIC ACID\IRON
  15. MAGNESIUM OXIDE [Concomitant]
     Active Substance: MAGNESIUM OXIDE
  16. COENZYME Q10 [Concomitant]
     Active Substance: DIETARY SUPPLEMENT\UBIDECARENONE
  17. VITAMINS [Concomitant]
     Active Substance: VITAMINS

REACTIONS (4)
  - Cardiac failure congestive [None]
  - Blood loss anaemia [None]
  - Haematoma [None]
  - Acute respiratory failure [None]

NARRATIVE: CASE EVENT DATE: 20240306
